FAERS Safety Report 25967372 (Version 1)
Quarter: 2025Q4

REPORT INFORMATION
  Report Type: Spontaneous
  Country: RU (occurrence: RU)
  Receive Date: 20251028
  Receipt Date: 20251028
  Transmission Date: 20260117
  Serious: Yes (Hospitalization, Other)
  Sender: JOHNSON AND JOHNSON
  Company Number: RU-JNJFOC-20251027466

PATIENT
  Age: 68 Year
  Sex: Female
  Weight: 80 kg

DRUGS (6)
  1. SIRTURO [Suspect]
     Active Substance: BEDAQUILINE FUMARATE
     Indication: Disseminated tuberculosis
     Dosage: CONTINUATION PHASE
     Route: 048
     Dates: start: 20250528, end: 20251007
  2. PROTIONAMIDE [Suspect]
     Active Substance: PROTIONAMIDE
     Indication: Disseminated tuberculosis
     Dosage: CONTINUATION PHASE
     Route: 048
     Dates: start: 20250528, end: 20251007
  3. MOXIFLOXACIN [Suspect]
     Active Substance: MOXIFLOXACIN
     Indication: Disseminated tuberculosis
     Dosage: CONTINUATION PHASE
     Route: 048
     Dates: start: 20250528, end: 20251007
  4. TERIZIDONE [Suspect]
     Active Substance: TERIZIDONE
     Indication: Disseminated tuberculosis
     Dosage: CONTINUATION PHASE
     Route: 048
     Dates: start: 20250528, end: 20251007
  5. AZILSARTAN MEDOXOMIL\CHLORTHALIDONE [Concomitant]
     Active Substance: AZILSARTAN MEDOXOMIL\CHLORTHALIDONE
     Indication: Product used for unknown indication
  6. BISOPROLOL [Concomitant]
     Active Substance: BISOPROLOL
     Indication: Product used for unknown indication

REACTIONS (5)
  - Drug-induced liver injury [Not Recovered/Not Resolved]
  - Gastritis erosive [Unknown]
  - Abdominal pain upper [Recovering/Resolving]
  - Dyspepsia [Recovering/Resolving]
  - Nausea [Recovering/Resolving]

NARRATIVE: CASE EVENT DATE: 20251006
